FAERS Safety Report 15607137 (Version 1)
Quarter: 2018Q4

REPORT INFORMATION
  Report Type: Spontaneous
  Country: US (occurrence: US)
  Receive Date: 20181106
  Receipt Date: 20181106
  Transmission Date: 20190205
  Serious: Yes (Hospitalization)
  Sender: FDA-Public Use
  Company Number: None

PATIENT
  Age: 5 Year

DRUGS (9)
  1. CYPROHEPTADINE. [Concomitant]
     Active Substance: CYPROHEPTADINE
  2. AQUADEKS [Concomitant]
     Active Substance: MINERALS\VITAMINS
  3. NASONEX [Concomitant]
     Active Substance: MOMETASONE FUROATE
  4. PROAIR HFA [Concomitant]
     Active Substance: ALBUTEROL SULFATE
  5. PULMOZYME [Concomitant]
     Active Substance: DORNASE ALFA
  6. SODIUM CHLORIDE. [Concomitant]
     Active Substance: SODIUM CHLORIDE
  7. VITAMIN D3 [Suspect]
     Active Substance: CHOLECALCIFEROL
     Indication: CYSTIC FIBROSIS
     Dosage: ?          OTHER STRENGTH:400 UNIT/ML DROP;OTHER DOSE:800 UNIT;?
     Route: 048
     Dates: start: 20140521
  8. URSODIOL. [Concomitant]
     Active Substance: URSODIOL
  9. ACIDOPHILUS [Concomitant]
     Active Substance: LACTOBACILLUS ACIDOPHILUS

REACTIONS (1)
  - Hospitalisation [None]
